FAERS Safety Report 11856413 (Version 2)
Quarter: 2016Q3

REPORT INFORMATION
  Report Type: Spontaneous
  Country: IT (occurrence: IT)
  Receive Date: 20151221
  Receipt Date: 20160728
  Transmission Date: 20161109
  Serious: Yes (Other)
  Sender: FDA-Public Use
  Company Number: IT-TEVA-618553ACC

PATIENT
  Age: 36 Year
  Sex: Female

DRUGS (1)
  1. GABAPENTIN TEVA PHARMA - 100 MG CAPSULE RIGIDE - TEVA PHARMA B.V. [Suspect]
     Active Substance: GABAPENTIN
     Indication: EPILEPSY
     Dosage: 100 MILLIGRAM DAILY; 100 MG DAILY
     Route: 048
     Dates: start: 20151210, end: 20151210

REACTIONS (3)
  - Somnolence [Recovering/Resolving]
  - Sinus tachycardia [Recovering/Resolving]
  - Asthenia [Recovering/Resolving]

NARRATIVE: CASE EVENT DATE: 20151211
